FAERS Safety Report 9408277 (Version 1)
Quarter: 2013Q3

REPORT INFORMATION
  Report Type: Report from Study
  Country: DE (occurrence: DE)
  Receive Date: 20130718
  Receipt Date: 20130718
  Transmission Date: 20140515
  Serious: Yes (Hospitalization)
  Sender: FDA-Public Use
  Company Number: PHHY2013DE074642

PATIENT
  Age: 72 Year
  Sex: Female
  Weight: 52 kg

DRUGS (4)
  1. HYDROCHLOROTHIAZIDE [Suspect]
     Indication: HYPERTONIA
     Dosage: DAILY DOSE
     Dates: start: 201107, end: 20121212
  2. SUNITINIB MALATE [Suspect]
     Dosage: 50 MG, DAILY
     Dates: start: 20120910
  3. ARANESP [Concomitant]
     Dosage: UNK UKN, UNK
     Dates: start: 20121017
  4. RESONIUM [Concomitant]
     Dosage: UNK UKN, UNK
     Dates: start: 20121031

REACTIONS (13)
  - Lung infiltration [Unknown]
  - Pleural effusion [Unknown]
  - Blood lactate dehydrogenase increased [Unknown]
  - C-reactive protein increased [Unknown]
  - Blood glucose fluctuation [Unknown]
  - Protein total decreased [Unknown]
  - Alanine aminotransferase increased [Unknown]
  - Aspartate aminotransferase increased [Unknown]
  - Blood creatine phosphokinase increased [Unknown]
  - Hyponatraemia [Recovered/Resolved]
  - Dizziness [Unknown]
  - Nausea [Unknown]
  - Vomiting [Unknown]
